FAERS Safety Report 18497139 (Version 1)
Quarter: 2020Q4

REPORT INFORMATION
  Report Type: Spontaneous
  Country: JP (occurrence: JP)
  Receive Date: 20201112
  Receipt Date: 20201112
  Transmission Date: 20210114
  Serious: Yes (Hospitalization)
  Sender: FDA-Public Use
  Company Number: JP-JNJFOC-20201118175

PATIENT
  Age: 46 Year
  Sex: Male

DRUGS (4)
  1. CANAGLIFLOZIN [Suspect]
     Active Substance: CANAGLIFLOZIN
     Indication: TYPE 2 DIABETES MELLITUS
     Route: 048
  2. METFORMIN HYDROCHLORIDE. [Suspect]
     Active Substance: METFORMIN HYDROCHLORIDE
     Indication: TYPE 2 DIABETES MELLITUS
     Route: 065
  3. MITIGLINIDE CALCIUM [Suspect]
     Active Substance: MITIGLINIDE CALCIUM ANHYDROUS
     Indication: TYPE 2 DIABETES MELLITUS
     Route: 065
  4. INSULIN GLARGINEGENETICAL RECOMBINATION) [Suspect]
     Active Substance: INSULIN GLARGINE
     Route: 065

REACTIONS (3)
  - Altered state of consciousness [Recovering/Resolving]
  - Metabolic acidosis [Recovering/Resolving]
  - Seizure [Recovering/Resolving]
